FAERS Safety Report 17565106 (Version 1)
Quarter: 2020Q1

REPORT INFORMATION
  Report Type: Spontaneous
  Country: FR (occurrence: FR)
  Receive Date: 20200320
  Receipt Date: 20200320
  Transmission Date: 20200409
  Serious: Yes (Other)
  Sender: FDA-Public Use
  Company Number: NVSC2020FR074599

PATIENT
  Age: 46 Year
  Sex: Female
  Weight: 50 kg

DRUGS (10)
  1. CALCIUM FOLINATE [Suspect]
     Active Substance: LEUCOVORIN CALCIUM
     Dosage: UNK UNK, CYCLIC
     Route: 042
     Dates: start: 20171103
  2. IRINOTECAN [Suspect]
     Active Substance: IRINOTECAN
     Dosage: 164 MG, CYCLIC
     Route: 042
     Dates: start: 20190207
  3. FLUOROURACIL. [Suspect]
     Active Substance: FLUOROURACIL
     Indication: COLORECTAL CANCER METASTATIC
     Dosage: UNK UNK, CYCLIC
     Route: 042
     Dates: start: 20171103, end: 20171103
  4. FLUOROURACIL. [Suspect]
     Active Substance: FLUOROURACIL
     Dosage: 2191 MG, CYCLIC
     Route: 042
     Dates: start: 20190207, end: 20190207
  5. AFLIBERCEPT [Suspect]
     Active Substance: AFLIBERCEPT
     Indication: COLORECTAL CANCER METASTATIC
     Dosage: UNK UNK, CYCLIC
     Route: 042
     Dates: start: 20171103, end: 20171103
  6. AFLIBERCEPT [Suspect]
     Active Substance: AFLIBERCEPT
     Dosage: 192 MG, CYCLIC
     Route: 042
     Dates: start: 20190207, end: 20190207
  7. FLUOROURACIL. [Suspect]
     Active Substance: FLUOROURACIL
     Dosage: UNK UNK, CYCLIC
     Route: 040
     Dates: start: 20171103
  8. CALCIUM FOLINATE [Suspect]
     Active Substance: LEUCOVORIN CALCIUM
     Indication: COLORECTAL CANCER METASTATIC
     Dosage: 304 MG, CYCLIC
     Route: 042
     Dates: start: 20190207, end: 20190207
  9. IRINOTECAN [Suspect]
     Active Substance: IRINOTECAN
     Indication: COLORECTAL CANCER METASTATIC
     Dosage: UNK UNK, CYCLIC
     Route: 042
     Dates: start: 20171103, end: 20171103
  10. FLUOROURACIL. [Suspect]
     Active Substance: FLUOROURACIL
     Dosage: 365 MG, CYCLIC
     Route: 040
     Dates: start: 20190207, end: 20190207

REACTIONS (1)
  - Proteinuria [Recovered/Resolved]

NARRATIVE: CASE EVENT DATE: 20190221
